FAERS Safety Report 4854160-9 (Version None)
Quarter: 2005Q4

REPORT INFORMATION
  Report Type: 
  Country: None (occurrence: None)
  Receive Date: 20051125
  Receipt Date: 20050714
  Transmission Date: 20060501
  Serious: Yes (Disabling, Other)
  Sender: FDA-Public Use
  Company Number: US-JNJFOC-20050601748

PATIENT
  Age: 76 Year
  Sex: Male

DRUGS (2)
  1. LEVAQUIN [Suspect]
     Indication: CHOLECYSTITIS
     Dates: start: 20050505, end: 20050512
  2. LEVAQUIN [Suspect]
     Indication: SEPSIS
     Dates: start: 20050505, end: 20050512

REACTIONS (1)
  - TENDON RUPTURE [None]
